FAERS Safety Report 17130830 (Version 1)
Quarter: 2019Q4

REPORT INFORMATION
  Report Type: Spontaneous
  Country: US (occurrence: US)
  Receive Date: 20191209
  Receipt Date: 20191209
  Transmission Date: 20200122
  Serious: Yes (Other)
  Sender: FDA-Public Use
  Company Number: US-ROCHE-2270997

PATIENT
  Sex: Female
  Weight: 71.21 kg

DRUGS (8)
  1. METHYLPHENIDATE. [Concomitant]
     Active Substance: METHYLPHENIDATE
     Indication: DEPRESSION
     Dosage: 1.5 TABLETS TAKEN 5 TIMES DAILY
     Route: 048
     Dates: start: 2009
  2. FUROSEMIDE. [Concomitant]
     Active Substance: FUROSEMIDE
     Indication: JOINT SWELLING
     Dosage: TAKING IT SINCE 2003 OR 2004
     Route: 048
  3. DIAZEPAM. [Suspect]
     Active Substance: DIAZEPAM
     Indication: ANXIETY
     Route: 048
     Dates: start: 2000
  4. IMIPRAMINE [Concomitant]
     Active Substance: IMIPRAMINE
     Indication: DEPRESSION
     Route: 048
     Dates: start: 2008
  5. OLANZAPINE. [Concomitant]
     Active Substance: OLANZAPINE
     Indication: DEPRESSION
     Route: 048
  6. DIAZEPAM. [Suspect]
     Active Substance: DIAZEPAM
     Indication: PANIC ATTACK
  7. LYRICA [Suspect]
     Active Substance: PREGABALIN
     Indication: OCCIPITAL NEURALGIA
     Route: 065
  8. LISINOPRIL. [Concomitant]
     Active Substance: LISINOPRIL
     Indication: HYPERTENSION
     Dosage: 20/25MG
     Route: 048
     Dates: start: 2000

REACTIONS (2)
  - Depression [Unknown]
  - Dizziness [Unknown]
